FAERS Safety Report 4715557-0 (Version None)
Quarter: 2005Q3

REPORT INFORMATION
  Report Type: 
  Country: None (occurrence: None)
  Receive Date: 20050713
  Receipt Date: 20050630
  Transmission Date: 20060218
  Serious: Yes (Hospitalization)
  Sender: FDA-Public Use
  Company Number: 2005SP001690

PATIENT
  Age: 75 Year
  Sex: Female

DRUGS (4)
  1. LUNESTA [Suspect]
     Indication: INSOMNIA
     Dosage: ORAL
     Route: 048
     Dates: start: 20050601, end: 20050101
  2. ATORVASTATIN CALCIUM [Concomitant]
  3. VERAPAMIL [Concomitant]
  4. ZIAC [Concomitant]

REACTIONS (1)
  - HEPATITIS [None]
